FAERS Safety Report 9433978 (Version 3)
Quarter: 2013Q4

REPORT INFORMATION
  Report Type: Spontaneous
  Country: FR (occurrence: FR)
  Receive Date: 20130801
  Receipt Date: 20131011
  Transmission Date: 20140711
  Serious: Yes (Hospitalization)
  Sender: FDA-Public Use
  Company Number: FR-ROCHE-1254872

PATIENT
  Age: 58 Year
  Sex: Male

DRUGS (16)
  1. ROACTEMRA [Suspect]
     Indication: JUVENILE IDIOPATHIC ARTHRITIS
     Route: 065
  2. ROACTEMRA [Suspect]
     Indication: PSORIATIC ARTHROPATHY
  3. METHOTREXATE [Suspect]
     Indication: JUVENILE IDIOPATHIC ARTHRITIS
     Route: 065
  4. METHOTREXATE [Suspect]
     Indication: PSORIATIC ARTHROPATHY
  5. SPECIAFOLDINE [Concomitant]
     Dosage: 2 TABLETS
     Route: 065
  6. ZYLORIC [Concomitant]
     Dosage: 1 TABLET
     Route: 065
  7. AMLOR [Concomitant]
     Dosage: 1 TABLET
     Route: 065
  8. KALEORID [Concomitant]
     Route: 065
  9. ACTONEL [Concomitant]
  10. MOPRAL (FRANCE) [Concomitant]
     Route: 065
  11. SERETIDE [Concomitant]
     Route: 065
  12. CORTANCYL [Concomitant]
     Dosage: IN THE MORNING
     Route: 065
  13. PROFENID [Concomitant]
     Route: 042
  14. SKENAN [Concomitant]
  15. ATROVENT [Concomitant]
  16. BRICANYL [Concomitant]

REACTIONS (1)
  - Hepatitis acute [Recovered/Resolved]
